FAERS Safety Report 7123472-0 (Version None)
Quarter: 2010Q4

REPORT INFORMATION
  Report Type: 
  Country: None (occurrence: None)
  Receive Date: 20101125
  Receipt Date: 20101117
  Transmission Date: 20110411
  Serious: No
  Sender: FDA-Public Use
  Company Number: US-BIOGENIDEC-2010BI040856

PATIENT
  Age: 29 Year
  Sex: Female

DRUGS (3)
  1. AVONEX [Suspect]
     Indication: MULTIPLE SCLEROSIS
     Route: 030
     Dates: start: 20020101
  2. AVONEX [Suspect]
     Route: 030
     Dates: start: 20030101, end: 20090101
  3. AVONEX [Suspect]
     Route: 030
     Dates: start: 20090101

REACTIONS (3)
  - HYPERTENSION [None]
  - NECK PAIN [None]
  - TRANSIENT ISCHAEMIC ATTACK [None]
